FAERS Safety Report 16088218 (Version 1)
Quarter: 2019Q1

REPORT INFORMATION
  Report Type: Spontaneous
  Country: JP (occurrence: JP)
  Receive Date: 20190319
  Receipt Date: 20190319
  Transmission Date: 20190418
  Serious: Yes (Life-Threatening)
  Sender: FDA-Public Use
  Company Number: JP-GLAXOSMITHKLINE-JP2019JPN047471

PATIENT
  Age: 78 Year
  Sex: Male
  Weight: 43 kg

DRUGS (15)
  1. LANSOPRAZOLE-OD [Concomitant]
     Active Substance: LANSOPRAZOLE
     Dosage: UNK
     Route: 048
  2. INTRALIPOS [Concomitant]
     Active Substance: SOYBEAN OIL
     Dosage: UNK
  3. MINOMYCIN CAPSULES [Concomitant]
     Dosage: 100 MG, UNK
     Route: 048
     Dates: start: 201710
  4. WARFARIN [Interacting]
     Active Substance: WARFARIN
     Dosage: 0.25 MG, UNK
     Route: 048
     Dates: start: 20190312
  5. ACETAMINOPHEN. [Concomitant]
     Active Substance: ACETAMINOPHEN
     Dosage: UNK
  6. DIFLUCAN [Interacting]
     Active Substance: FLUCONAZOLE
     Indication: FUNGAEMIA
     Dosage: 400 MG, 1D
     Route: 048
     Dates: start: 201805
  7. WARFARIN [Interacting]
     Active Substance: WARFARIN
     Indication: PULMONARY EMBOLISM
     Dosage: 0.5 MG, 1D, ON TUESDAY, THURSDAY, AND SATURDAY
     Route: 048
     Dates: start: 201710, end: 20190305
  8. RIONA [Concomitant]
     Active Substance: FERRIC CITRATE ANHYDROUS
     Dosage: UNK
  9. NEOAMIYU [Concomitant]
     Active Substance: AMINO ACIDS
     Dosage: UNK
  10. VALACICLOVIR HYDROCHLORIDE [Suspect]
     Active Substance: VALACYCLOVIR HYDROCHLORIDE
     Indication: HERPES ZOSTER
     Dosage: 250 MG, 1D
     Route: 048
     Dates: start: 20190224, end: 20190302
  11. VASOLAN [Concomitant]
     Active Substance: VERAPAMIL HYDROCHLORIDE
     Dosage: UNK
     Route: 048
  12. PREDONINE [Concomitant]
     Active Substance: PREDNISOLONE
     Dosage: UNK
  13. SYMBICORT TURBUHALER (BUDESONIDE + FORMOTEROL FUMARATE DIHYDRATE) [Concomitant]
     Dosage: UNK
     Route: 055
  14. MAINTATE [Concomitant]
     Active Substance: BISOPROLOL FUMARATE
     Dosage: UNK
  15. TAMSULOSIN HYDROCHLORIDE OD [Concomitant]
     Active Substance: TAMSULOSIN HYDROCHLORIDE
     Dosage: UNK
     Route: 048

REACTIONS (3)
  - Drug interaction [Unknown]
  - Prothrombin time prolonged [Recovered/Resolved]
  - Speech disorder [Unknown]

NARRATIVE: CASE EVENT DATE: 20190228
